FAERS Safety Report 14008919 (Version 3)
Quarter: 2017Q4

REPORT INFORMATION
  Report Type: Spontaneous
  Country: JP (occurrence: JP)
  Receive Date: 20170925
  Receipt Date: 20171117
  Transmission Date: 20180321
  Serious: Yes (Hospitalization)
  Sender: FDA-Public Use
  Company Number: JP-AMGEN-JPNSP2017142212

PATIENT
  Age: 63 Year
  Sex: Female

DRUGS (22)
  1. FESIN [Concomitant]
     Active Substance: IRON SUCROSE
     Dosage: 20 MG, UNK
     Dates: end: 20171004
  2. ALOSENN [Concomitant]
     Active Substance: SENNA LEAF
     Dosage: UNK
  3. ALFAROL [Concomitant]
     Active Substance: ALFACALCIDOL
     Dosage: UNK
  4. ISODINE [Concomitant]
     Active Substance: POVIDONE-IODINE
     Dosage: UNK
  5. EPADEL [Concomitant]
     Active Substance: ICOSAPENT
     Dosage: UNK
  6. PLAVIX [Concomitant]
     Active Substance: CLOPIDOGREL BISULFATE
     Dosage: UNK
  7. YOUPATCH [Concomitant]
     Dosage: UNK
  8. SENNOSIDE [Concomitant]
     Active Substance: SENNOSIDES
     Dosage: UNK
  9. PARSABIV [Suspect]
     Active Substance: ETELCALCETIDE HYDROCHLORIDE
     Dosage: 2.5 MG, 3 TIMES/WK
     Route: 042
     Dates: start: 20170822
  10. ALYPROST [Concomitant]
     Dosage: UNK
  11. FESIN [Concomitant]
     Active Substance: IRON SUCROSE
     Dosage: 40 MG, QWK
     Dates: start: 20171005
  12. KIKLIN [Concomitant]
     Active Substance: BIXALOMER
     Dosage: UNK, 1500 MG DIALYSIS DAY, 1000 MG NON-DIALYSIS
  13. SELBEX [Concomitant]
     Active Substance: TEPRENONE
     Dosage: UNK
  14. PARSABIV [Suspect]
     Active Substance: ETELCALCETIDE HYDROCHLORIDE
     Indication: HYPERPARATHYROIDISM SECONDARY
     Dosage: 5 MG, 3 TIMES/WK
     Route: 042
     Dates: start: 20170815, end: 201708
  15. NEXIUM [Concomitant]
     Active Substance: ESOMEPRAZOLE MAGNESIUM
     Dosage: UNK
  16. BAYASPIRIN [Concomitant]
     Active Substance: ASPIRIN
     Dosage: UNK
  17. NESP [Concomitant]
     Active Substance: DARBEPOETIN ALFA
     Indication: PRODUCT USED FOR UNKNOWN INDICATION
     Dosage: 30 MUG, UNK
     Route: 065
     Dates: end: 20170925
  18. NESP [Concomitant]
     Active Substance: DARBEPOETIN ALFA
     Dosage: 60 MUG, QWK
     Route: 065
     Dates: start: 20170926
  19. FOSRENOL [Concomitant]
     Active Substance: LANTHANUM CARBONATE
     Dosage: UNK, 1500 MG DIALYSIS DAY, 1000 MG NON-DIALYSIS
  20. CARTARETIN [Concomitant]
     Active Substance: CALCIUM CARBONATE
     Dosage: UNK
  21. ZETIA [Concomitant]
     Active Substance: EZETIMIBE
     Dosage: UNK
  22. MOHRUS L [Concomitant]
     Active Substance: KETOPROFEN
     Dosage: UNK

REACTIONS (1)
  - Arteriosclerosis [Recovered/Resolved]

NARRATIVE: CASE EVENT DATE: 20170913
